FAERS Safety Report 7388252-X (Version None)
Quarter: 2011Q2

REPORT INFORMATION
  Report Type: 
  Country: None (occurrence: None)
  Receive Date: 20110401
  Receipt Date: 20101026
  Transmission Date: 20111010
  Serious: Yes (Hospitalization, Other)
  Sender: FDA-Public Use
  Company Number: US-BAYER-201023187NA

PATIENT
  Sex: Female
  Weight: 75.283 kg

DRUGS (3)
  1. COLESTID [Concomitant]
     Indication: PROPHYLAXIS AGAINST DIARRHOEA
     Dosage: UNK
     Route: 048
     Dates: start: 20030101
  2. LEXAPRO [Concomitant]
     Dosage: 20 MG, QD
     Route: 048
     Dates: start: 20060101, end: 20091001
  3. YAZ [Suspect]
     Dosage: UNK
     Route: 048
     Dates: start: 20030101

REACTIONS (5)
  - CHOLECYSTITIS CHRONIC [None]
  - CHOLECYSTITIS ACUTE [None]
  - CHOLELITHIASIS [None]
  - GALLBLADDER DISORDER [None]
  - MENTAL DISORDER [None]
